FAERS Safety Report 9424689 (Version 1)
Quarter: 2013Q3

REPORT INFORMATION
  Report Type: Report from Study
  Country: AU (occurrence: AU)
  Receive Date: 20130729
  Receipt Date: 20130729
  Transmission Date: 20140515
  Serious: Yes (Death)
  Sender: FDA-Public Use
  Company Number: AU-INCYTE CORPORATION-2013IN001616

PATIENT
  Age: 74 Year
  Sex: Male

DRUGS (1)
  1. INC424 [Suspect]
     Indication: MYELOFIBROSIS
     Dosage: 15 MG, BID
     Route: 048

REACTIONS (1)
  - Death [Fatal]
